FAERS Safety Report 7198115-0 (Version None)
Quarter: 2010Q4

REPORT INFORMATION
  Report Type: 
  Country: None (occurrence: None)
  Receive Date: 20101214
  Receipt Date: 20101130
  Transmission Date: 20110411
  Serious: Yes (Hospitalization)
  Sender: FDA-Public Use
  Company Number: US-001411

PATIENT
  Sex: Male

DRUGS (3)
  1. NAGLAZYME [Suspect]
     Indication: MUCOPOLYSACCHARIDOSIS VI
     Dosage: (15 MG 1X/WEEK INTRAVENOUS DRIP)
     Route: 041
  2. LISINOPRIL [Concomitant]
  3. NORMAL SALINE [Concomitant]

REACTIONS (2)
  - DEVICE RELATED INFECTION [None]
  - STAPHYLOCOCCAL BACTERAEMIA [None]
